FAERS Safety Report 7505280-1 (Version None)
Quarter: 2011Q2

REPORT INFORMATION
  Report Type: 
  Country: None (occurrence: None)
  Receive Date: 20110526
  Receipt Date: 20110512
  Transmission Date: 20111010
  Serious: Yes (Other)
  Sender: FDA-Public Use
  Company Number: DE-RANBAXY-2011RR-44642

PATIENT
  Age: 69 Year
  Sex: Female
  Weight: 90 kg

DRUGS (2)
  1. CEFUROXIME [Suspect]
     Indication: OSTEOMYELITIS
     Dosage: 4.5 G, QD
     Route: 042
     Dates: start: 20101023, end: 20101105
  2. CLINDAMYCIN [Concomitant]
     Indication: OSTEOMYELITIS
     Dosage: 1800 MG, QD
     Route: 042
     Dates: start: 20101021

REACTIONS (1)
  - HEPATOTOXICITY [None]
